FAERS Safety Report 7193231-1 (Version None)
Quarter: 2010Q4

REPORT INFORMATION
  Report Type: 
  Country: None (occurrence: None)
  Receive Date: 20101223
  Receipt Date: 20100901
  Transmission Date: 20110411
  Serious: No
  Sender: FDA-Public Use
  Company Number: US-AMGEN-KDL435705

PATIENT

DRUGS (2)
  1. ENBREL [Suspect]
     Indication: RHEUMATOID ARTHRITIS
     Dosage: 25 MG, 2 TIMES/WK
     Route: 058
     Dates: start: 20030401
  2. ENBREL [Suspect]
     Indication: OSTEOARTHRITIS

REACTIONS (2)
  - RHEUMATOID ARTHRITIS [None]
  - VULVOVAGINAL MYCOTIC INFECTION [None]
